FAERS Safety Report 17402748 (Version 1)
Quarter: 2020Q1

REPORT INFORMATION
  Report Type: Spontaneous
  Country: US (occurrence: US)
  Receive Date: 20200210
  Receipt Date: 20200210
  Transmission Date: 20200409
  Serious: Yes (Hospitalization)
  Sender: FDA-Public Use
  Company Number: None

PATIENT
  Age: 14 Year
  Sex: Male
  Weight: 51.4 kg

DRUGS (17)
  1. BUDESONIDE 0.5MG/2ML [Concomitant]
     Active Substance: BUDESONIDE
  2. POLYETHYLENE GLYCOL [Concomitant]
     Active Substance: POLYETHYLENE GLYCOLS
  3. ABREVA [Concomitant]
     Active Substance: DOCOSANOL
  4. EPIDIOLEX [Suspect]
     Active Substance: CANNABIDIOL
     Indication: EPILEPSY
     Route: 048
     Dates: start: 20190419
  5. MONTELUKAST [Concomitant]
     Active Substance: MONTELUKAST SODIUM
  6. FLEET ENEMA [Concomitant]
     Active Substance: SODIUM PHOSPHATE, DIBASIC\SODIUM PHOSPHATE, MONOBASIC
  7. LEVETIRACETAM 100MG/ML [Concomitant]
     Active Substance: LEVETIRACETAM
  8. LORAZEPAM 2MG [Concomitant]
     Active Substance: LORAZEPAM
  9. OXCARBAMAZEPINE 300MG/5ML [Concomitant]
  10. QVAR [Concomitant]
     Active Substance: BECLOMETHASONE DIPROPIONATE
  11. FLONASE [Concomitant]
     Active Substance: FLUTICASONE PROPIONATE
  12. LORATADINE 10MG [Concomitant]
     Active Substance: LORATADINE
  13. NEILMED SINUS RINSE [Concomitant]
     Active Substance: SODIUM BICARBONATE\SODIUM CHLORIDE
  14. IBUPROFEN 100MG/5ML [Concomitant]
     Active Substance: IBUPROFEN
  15. IPRATROPIUM BROMIDE. [Concomitant]
     Active Substance: IPRATROPIUM BROMIDE
  16. ALBUTEROL INHALER [Concomitant]
     Active Substance: ALBUTEROL
  17. ACYCLOVIR 200MG/5ML [Concomitant]

REACTIONS (1)
  - Seizure [None]

NARRATIVE: CASE EVENT DATE: 20200117
